FAERS Safety Report 8091876-8 (Version None)
Quarter: 2012Q1

REPORT INFORMATION
  Report Type: 
  Country: None (occurrence: None)
  Receive Date: 20120129
  Receipt Date: 20111205
  Transmission Date: 20120608
  Serious: No
  Sender: FDA-Public Use
  Company Number: US-ABBOTT-11P-163-0881195-00

PATIENT
  Sex: Male

DRUGS (3)
  1. HUMIRA [Suspect]
     Dates: start: 20100101, end: 20111101
  2. HUMIRA [Suspect]
     Indication: RHEUMATOID ARTHRITIS
     Dates: start: 20080101, end: 20100101
  3. HUMIRA [Suspect]
     Dates: start: 20111101

REACTIONS (3)
  - EXPIRED DRUG ADMINISTERED [None]
  - NECK PAIN [None]
  - PAIN IN EXTREMITY [None]
